FAERS Safety Report 5701133-X (Version None)
Quarter: 2008Q2

REPORT INFORMATION
  Report Type: 
  Country: None (occurrence: None)
  Receive Date: 20080410
  Receipt Date: 20080403
  Transmission Date: 20081010
  Serious: Yes (Life-Threatening)
  Sender: FDA-Public Use
  Company Number: CH-AVENTIS-200813049GDDC

PATIENT
  Age: 65 Year
  Sex: Female

DRUGS (15)
  1. FLAGYL [Suspect]
     Dates: end: 20080306
  2. PROGRAF [Suspect]
     Route: 048
     Dates: end: 20080307
  3. CELLCEPT [Suspect]
     Route: 048
  4. NOXAFIL [Suspect]
  5. CASPOFUNGIN [Concomitant]
     Dates: start: 20080228
  6. POTASSIUM CHLORIDE [Concomitant]
     Route: 042
  7. LIQUEMIN                           /00027701/ [Concomitant]
     Route: 058
  8. RECORMON [Concomitant]
     Route: 058
  9. ALBUMIN (HUMAN) [Concomitant]
  10. FOLVITE                            /00024201/ [Concomitant]
     Route: 048
  11. NEXIUM [Concomitant]
     Route: 048
  12. NEPHROTRANS [Concomitant]
     Route: 048
  13. WELLVONE [Concomitant]
     Route: 048
  14. PREDNISONE [Concomitant]
     Route: 048
     Dates: start: 20080303
  15. TORSEMIDE [Concomitant]

REACTIONS (1)
  - EPILEPSY [None]
